FAERS Safety Report 10799677 (Version 1)
Quarter: 2015Q1

REPORT INFORMATION
  Report Type: Report from Study
  Country: US (occurrence: US)
  Receive Date: 20150216
  Receipt Date: 20150216
  Transmission Date: 20150721
  Serious: No
  Sender: FDA-Public Use
  Company Number: US-ABBVIE-14K-163-1243097-00

PATIENT
  Age: 55 Year
  Sex: Female

DRUGS (32)
  1. XANAX [Concomitant]
     Active Substance: ALPRAZOLAM
     Indication: ANXIETY
     Dosage: UP TO THREE TIMES A DAY
  2. ALLEGRA [Concomitant]
     Active Substance: FEXOFENADINE HYDROCHLORIDE
     Indication: HYPERSENSITIVITY
  3. VITAMIN B12 [Concomitant]
     Active Substance: CYANOCOBALAMIN
     Indication: VITAMIN B12 DEFICIENCY
  4. VITAMIN B12 [Concomitant]
     Active Substance: CYANOCOBALAMIN
     Indication: ANAEMIA
  5. 6-MP [Concomitant]
     Active Substance: MERCAPTOPURINE
     Indication: CROHN^S DISEASE
     Dosage: ONE AND HALF TABS
  6. QVAR [Concomitant]
     Active Substance: BECLOMETHASONE DIPROPIONATE
     Indication: ASTHMA
  7. ALBUTEROL. [Concomitant]
     Active Substance: ALBUTEROL
     Indication: ASTHMA
  8. BACLOFEN. [Concomitant]
     Active Substance: BACLOFEN
     Indication: MUSCLE SPASMS
  9. CYMBALTA [Concomitant]
     Active Substance: DULOXETINE HYDROCHLORIDE
     Indication: DEPRESSION
  10. ASACOL [Concomitant]
     Active Substance: MESALAMINE
     Indication: CROHN^S DISEASE
  11. BENADRYL [Concomitant]
     Active Substance: DIPHENHYDRAMINE HYDROCHLORIDE
     Indication: PRODUCT USED FOR UNKNOWN INDICATION
  12. BENTYL [Concomitant]
     Active Substance: DICYCLOMINE HYDROCHLORIDE
     Indication: ABDOMINAL PAIN UPPER
     Dosage: BEFORE MEALS AND AT BEDTIME
  13. ELMIRON [Concomitant]
     Active Substance: PENTOSAN POLYSULFATE SODIUM
     Indication: URINARY TRACT INFECTION
  14. CALCIUM [Concomitant]
     Active Substance: CALCIUM
     Indication: MINERAL SUPPLEMENTATION
  15. PREDNISONE. [Concomitant]
     Active Substance: PREDNISONE
     Dates: start: 20140514
  16. CYMBALTA [Concomitant]
     Active Substance: DULOXETINE HYDROCHLORIDE
     Indication: FIBROMYALGIA
  17. PROTONIX [Concomitant]
     Active Substance: PANTOPRAZOLE SODIUM
     Indication: GASTROOESOPHAGEAL REFLUX DISEASE
  18. VITAMIN D [Concomitant]
     Active Substance: CHOLECALCIFEROL
     Indication: VITAMIN D DEFICIENCY
  19. PREDNISONE. [Concomitant]
     Active Substance: PREDNISONE
     Indication: CROHN^S DISEASE
     Dosage: WEANED OFF
     Dates: end: 2014
  20. ATENOLOL. [Concomitant]
     Active Substance: ATENOLOL
     Indication: VENTRICULAR EXTRASYSTOLES
     Dosage: AT NIGHT
  21. ATENOLOL. [Concomitant]
     Active Substance: ATENOLOL
     Indication: PALPITATIONS
  22. EPIPEN [Concomitant]
     Active Substance: EPINEPHRINE
     Indication: PRODUCT USED FOR UNKNOWN INDICATION
  23. NASONEX [Concomitant]
     Active Substance: MOMETASONE FUROATE
     Indication: HYPERSENSITIVITY
     Dosage: TWO SPRAYS EACH NOSTRIL
     Route: 045
  24. VICODIN [Concomitant]
     Active Substance: ACETAMINOPHEN\HYDROCODONE BITARTRATE
     Indication: PAIN
     Dosage: 3.5/325 MG, FIVE PILLS
  25. HUMIRA [Suspect]
     Active Substance: ADALIMUMAB
     Dates: start: 20140422, end: 20140422
  26. CLONAZEPAM. [Concomitant]
     Active Substance: CLONAZEPAM
     Indication: RESTLESS LEGS SYNDROME
  27. ELMIRON [Concomitant]
     Active Substance: PENTOSAN POLYSULFATE SODIUM
     Indication: CYSTITIS NONINFECTIVE
  28. NORVASC [Concomitant]
     Active Substance: AMLODIPINE BESYLATE
     Indication: PERIPHERAL VASCULAR DISORDER
     Dosage: 1 TABLET
  29. ALIGN [Concomitant]
     Active Substance: BIFIDOBACTERIUM LONGUM SUBSP. INFANTIS
     Indication: PROBIOTIC THERAPY
     Dosage: PROBIOTIC
  30. HUMIRA [Suspect]
     Active Substance: ADALIMUMAB
     Indication: CROHN^S DISEASE
     Dates: start: 20140421, end: 20140421
  31. ELMIRON [Concomitant]
     Active Substance: PENTOSAN POLYSULFATE SODIUM
     Indication: CYSTITIS INTERSTITIAL
  32. VESICARE [Concomitant]
     Active Substance: SOLIFENACIN SUCCINATE
     Indication: URINARY INCONTINENCE

REACTIONS (19)
  - Malaise [Unknown]
  - Pharyngeal oedema [Unknown]
  - Headache [Recovered/Resolved]
  - Productive cough [Unknown]
  - Skin burning sensation [Not Recovered/Not Resolved]
  - Respiratory tract congestion [Unknown]
  - Vomiting [Unknown]
  - Sinusitis [Unknown]
  - Sinus disorder [Not Recovered/Not Resolved]
  - Hypersensitivity [Unknown]
  - Nausea [Unknown]
  - Headache [Recovered/Resolved]
  - Paranasal sinus discomfort [Unknown]
  - Bronchitis [Unknown]
  - Dysphagia [Unknown]
  - Urticaria [Not Recovered/Not Resolved]
  - Insomnia [Unknown]
  - Activities of daily living impaired [Unknown]
  - Rash [Recovering/Resolving]

NARRATIVE: CASE EVENT DATE: 2014
